FAERS Safety Report 25527634 (Version 2)
Quarter: 2025Q3

REPORT INFORMATION
  Report Type: Spontaneous
  Country: EU (occurrence: EU)
  Receive Date: 20250708
  Receipt Date: 20250801
  Transmission Date: 20251020
  Serious: No
  Sender: ROCHE
  Company Number: EU-ROCHE-10000326187

PATIENT
  Sex: Female

DRUGS (1)
  1. VABYSMO [Suspect]
     Active Substance: FARICIMAB-SVOA
     Indication: Macular oedema
     Route: 050

REACTIONS (2)
  - Iridocyclitis [Unknown]
  - Vitritis [Unknown]

NARRATIVE: CASE EVENT DATE: 20250620
